FAERS Safety Report 6277195-0 (Version None)
Quarter: 2009Q3

REPORT INFORMATION
  Report Type: 
  Country: None (occurrence: None)
  Receive Date: 20090722
  Receipt Date: 20090206
  Transmission Date: 20100115
  Serious: No
  Sender: FDA-Public Use
  Company Number: US-BRISTOL-MYERS SQUIBB COMPANY-14497838

PATIENT
  Age: 79 Year
  Sex: Male
  Weight: 85 kg

DRUGS (2)
  1. COUMADIN [Suspect]
     Indication: CARDIOVERSION
     Dosage: 1 DOSAGE FORM=5MG 3DAYS A WEEK; 7.5MG 4DAYS A WEEK
     Dates: start: 20081201
  2. SOTALOL [Concomitant]

REACTIONS (1)
  - BLOOD PRESSURE INCREASED [None]
